FAERS Safety Report 8481566-1 (Version None)
Quarter: 2012Q3

REPORT INFORMATION
  Report Type: 
  Country: None (occurrence: None)
  Receive Date: 20120702
  Receipt Date: 20120626
  Transmission Date: 20120928
  Serious: Yes (Life-Threatening, Hospitalization)
  Sender: FDA-Public Use
  Company Number: PHHY2012ES035628

PATIENT
  Age: 64 Year
  Sex: Female

DRUGS (4)
  1. ANTIDEPRESSANTS [Concomitant]
     Dosage: UNK UKN, UNK
  2. ANTIARRHYTHMICS, CLASS I AND III [Concomitant]
     Dosage: UNK UKN, UNK
  3. GILENYA [Suspect]
     Dosage: 0.5 MG, QD
     Route: 048
     Dates: start: 20110901, end: 20120330
  4. GILENYA [Suspect]
     Dosage: 0.5 MG, QD
     Route: 048
     Dates: start: 20120501, end: 20120525

REACTIONS (5)
  - INFECTIOUS PERITONITIS [None]
  - SEROMA [None]
  - APPENDICITIS [None]
  - COMA [None]
  - GASTROENTERITIS [None]
